FAERS Safety Report 21481115 (Version 1)
Quarter: 2022Q4

REPORT INFORMATION
  Report Type: Spontaneous
  Country: US (occurrence: None)
  Receive Date: 20221019
  Receipt Date: 20221019
  Transmission Date: 20230112
  Serious: No
  Sender: FDA-Public Use
  Company Number: US-ROCHE-3002724

PATIENT
  Age: 57 Year
  Sex: Female

DRUGS (1)
  1. COTELLIC [Suspect]
     Active Substance: COBIMETINIB
     Indication: Product used for unknown indication
     Route: 048
     Dates: start: 202003

REACTIONS (3)
  - Malaise [Unknown]
  - COVID-19 [Unknown]
  - Pharyngitis streptococcal [Unknown]

NARRATIVE: CASE EVENT DATE: 20220110
